FAERS Safety Report 9015508 (Version 1)
Quarter: 2013Q1

REPORT INFORMATION
  Report Type: Spontaneous
  Country: US (occurrence: None)
  Receive Date: 20130102
  Receipt Date: 20130102
  Transmission Date: 20140127
  Serious: Yes (Death)
  Sender: FDA-Public Use
  Company Number: 2012-689

PATIENT
  Age: 89 Year
  Sex: Female

DRUGS (3)
  1. CLOZAPINE [Suspect]
     Route: 048
     Dates: start: 20121017, end: 20121127
  2. CELEXA [Concomitant]
  3. NAMENDA [Concomitant]

REACTIONS (1)
  - Dementia [None]
